FAERS Safety Report 19759376 (Version 1)
Quarter: 2021Q3

REPORT INFORMATION
  Report Type: Spontaneous
  Country: NL (occurrence: NL)
  Receive Date: 20210829
  Receipt Date: 20210829
  Transmission Date: 20211014
  Serious: Yes (Hospitalization)
  Sender: FDA-Public Use
  Company Number: NL-BIOVITRUM-2021NL7859

PATIENT
  Age: 9 Month
  Sex: Male
  Weight: 8 kg

DRUGS (7)
  1. ESOMEPRAZOL [Concomitant]
     Active Substance: ESOMEPRAZOLE
  2. NATRIUMCHLORIDE [Concomitant]
     Active Substance: SODIUM CHLORIDE
     Dosage: 9 MILLIGRAM PER MILLILITER
     Route: 065
  3. FUROSEMIDE. [Concomitant]
     Active Substance: FUROSEMIDE
     Dosage: 5 MG/ML
     Route: 065
  4. SYNAGIS [Suspect]
     Active Substance: PALIVIZUMAB
     Indication: ANTIVIRAL PROPHYLAXIS
     Dosage: 100 MG/ML (MILLIGRAM PER MILLILITER),1.0 DF UNKNOWN
     Route: 030
     Dates: start: 20210702
  5. FLUTICASON [Concomitant]
     Active Substance: FLUTICASONE
     Route: 065
  6. MACROGOL [Concomitant]
     Active Substance: POLYETHYLENE GLYCOLS
     Route: 065
  7. COTRIMOXAZOL [Concomitant]
     Active Substance: SULFAMETHOXAZOLE\TRIMETHOPRIM
     Route: 065

REACTIONS (2)
  - Respiratory syncytial virus infection [Recovered/Resolved]
  - Drug ineffective [Recovered/Resolved]

NARRATIVE: CASE EVENT DATE: 20210708
